FAERS Safety Report 12308828 (Version 1)
Quarter: 2016Q2

REPORT INFORMATION
  Report Type: Spontaneous
  Country: US (occurrence: None)
  Receive Date: 20160426
  Receipt Date: 20160426
  Transmission Date: 20160815
  Serious: No
  Sender: FDA-Public Use
  Company Number: None

PATIENT
  Age: 44 Year
  Sex: Female
  Weight: 74.39 kg

DRUGS (1)
  1. COPAXONE [Suspect]
     Active Substance: GLATIRAMER ACETATE
     Indication: MULTIPLE SCLEROSIS
     Route: 058

REACTIONS (6)
  - Vomiting [None]
  - Anaphylactic reaction [None]
  - Nausea [None]
  - Wheezing [None]
  - Urticaria [None]
  - Palpitations [None]

NARRATIVE: CASE EVENT DATE: 20160420
